FAERS Safety Report 5364769-4 (Version None)
Quarter: 2007Q2

REPORT INFORMATION
  Report Type: 
  Country: None (occurrence: None)
  Receive Date: 20070530
  Receipt Date: 20070123
  Transmission Date: 20071010
  Serious: No
  Sender: FDA-Public Use
  Company Number: 2007PV028893

PATIENT
  Age: 44 Year
  Sex: Male
  Weight: 199.5827 kg

DRUGS (10)
  1. BYETTA [Suspect]
     Indication: DIABETES MELLITUS NON-INSULIN-DEPENDENT
     Dosage: 5 MCG; BID; SC
     Route: 058
     Dates: start: 20070109
  2. HUMULIN 70/30 [Concomitant]
  3. LANTUS [Concomitant]
  4. PREVACID [Concomitant]
  5. ALLOPURINOL [Concomitant]
  6. CRESTOR [Concomitant]
  7. DERMADEX [Concomitant]
  8. ESKALITH [Concomitant]
  9. FLUOXETINE [Concomitant]
  10. SYNTHROID [Concomitant]

REACTIONS (4)
  - BLOOD GLUCOSE DECREASED [None]
  - NAUSEA [None]
  - VOMITING [None]
  - WEIGHT DECREASED [None]
